FAERS Safety Report 21071005 (Version 1)
Quarter: 2022Q3

REPORT INFORMATION
  Report Type: Spontaneous
  Country: US (occurrence: None)
  Receive Date: 20220712
  Receipt Date: 20220712
  Transmission Date: 20221026
  Serious: Yes (Disabling)
  Sender: FDA-Public Use
  Company Number: None

PATIENT
  Age: 58 Year
  Sex: Male
  Weight: 95.4 kg

DRUGS (3)
  1. TESTOSTERONE CYPIONATE [Suspect]
     Active Substance: TESTOSTERONE CYPIONATE
     Indication: Blood testosterone decreased
     Dosage: OTHER QUANTITY : 12 INJECTION(S);?OTHER FREQUENCY : ONCE WEEKLY;?OTHER ROUTE : INJECTED INTO MUSCLE;
     Route: 050
  2. auc  Davis records [Concomitant]
  3. UC davis records [Concomitant]

REACTIONS (4)
  - Blood testosterone decreased [None]
  - Suspected product quality issue [None]
  - Product quality issue [None]
  - Product storage error [None]
